FAERS Safety Report 24344173 (Version 2)
Quarter: 2024Q3

REPORT INFORMATION
  Report Type: Spontaneous
  Country: US (occurrence: US)
  Receive Date: 20240920
  Receipt Date: 20240926
  Transmission Date: 20241016
  Serious: Yes (Other)
  Sender: REGENERON
  Company Number: US-REGENERON PHARMACEUTICALS, INC.-2024-125822

PATIENT
  Age: 89 Year
  Sex: Female

DRUGS (5)
  1. EYLEA [Suspect]
     Active Substance: AFLIBERCEPT
     Indication: Neovascular age-related macular degeneration
     Dosage: 2 MG, LEFT EYE, FORMULATION: UNKNOWN
     Route: 031
     Dates: start: 2021
  2. EYLEA [Suspect]
     Active Substance: AFLIBERCEPT
     Dosage: 2MG, FORMULATION: UNKNOWN
     Route: 031
     Dates: start: 20230811, end: 20230811
  3. EYLEA [Suspect]
     Active Substance: AFLIBERCEPT
     Dosage: 2 MG, FORMULATION: UNKNOWN
     Route: 031
     Dates: start: 20231013, end: 20231013
  4. EYLEA [Suspect]
     Active Substance: AFLIBERCEPT
     Dosage: 2 MG, FORMULATION: UNKNOWN
     Route: 031
  5. EYLEA [Suspect]
     Active Substance: AFLIBERCEPT
     Dosage: 2 MG, FORMULATION: UNKNOWN
     Route: 031

REACTIONS (3)
  - Subretinal fluid [Unknown]
  - Neovascular age-related macular degeneration [Unknown]
  - Product dose omission issue [Recovered/Resolved]

NARRATIVE: CASE EVENT DATE: 20221201
